FAERS Safety Report 14260026 (Version 3)
Quarter: 2020Q2

REPORT INFORMATION
  Report Type: Spontaneous
  Country: US (occurrence: US)
  Receive Date: 20171207
  Receipt Date: 20200505
  Transmission Date: 20200713
  Serious: No
  Sender: FDA-Public Use
  Company Number: US-VIFOR (INTERNATIONAL) INC.-VIT-2017-09609

PATIENT
  Age: 74 Year
  Sex: Female
  Weight: 74.46 kg

DRUGS (18)
  1. ALLOPURINOL. [Concomitant]
     Active Substance: ALLOPURINOL
  2. METOPROLOL SUCCINATE. [Concomitant]
     Active Substance: METOPROLOL SUCCINATE
  3. ASPIRIN. [Concomitant]
     Active Substance: ASPIRIN
  4. VITAMIN D3 [Concomitant]
     Active Substance: CHOLECALCIFEROL
  5. ATORVASTATIN CALCIUM. [Concomitant]
     Active Substance: ATORVASTATIN CALCIUM
  6. CALCITRIOL. [Concomitant]
     Active Substance: CALCITRIOL
  7. FERROUS SULFATE. [Concomitant]
     Active Substance: FERROUS SULFATE
  8. IRON [Concomitant]
     Active Substance: IRON
  9. LEVOTHYROXINE SODIUM. [Concomitant]
     Active Substance: LEVOTHYROXINE SODIUM
  10. MAGNESIUM [Concomitant]
     Active Substance: MAGNESIUM
  11. VELTASSA [Suspect]
     Active Substance: PATIROMER
     Indication: HYPERKALAEMIA
     Route: 048
     Dates: start: 20170822
  12. VELTASSA [Suspect]
     Active Substance: PATIROMER
     Route: 048
     Dates: start: 20170919
  13. TYLENOL [Concomitant]
     Active Substance: ACETAMINOPHEN
  14. ESTRACE [Concomitant]
     Active Substance: ESTRADIOL
  15. FISH OIL [Concomitant]
     Active Substance: FISH OIL
  16. VALSARTAN AND HYDROCHLOR THIAZIDE [Concomitant]
  17. SIMVASTATIN. [Concomitant]
     Active Substance: SIMVASTATIN
  18. GABAPENTIN. [Concomitant]
     Active Substance: GABAPENTIN

REACTIONS (2)
  - Joint swelling [Recovering/Resolving]
  - Hypertension [Unknown]

NARRATIVE: CASE EVENT DATE: 201709
